FAERS Safety Report 5032358-7 (Version None)
Quarter: 2006Q2

REPORT INFORMATION
  Report Type: 
  Country: None (occurrence: None)
  Receive Date: 20060622
  Receipt Date: 20060609
  Transmission Date: 20061013
  Serious: Yes (Other)
  Sender: FDA-Public Use
  Company Number: PHFR2006GB01958

PATIENT
  Age: 21 Year
  Sex: Male

DRUGS (8)
  1. TEGRETOL [Suspect]
     Indication: EPILEPSY
     Dosage: 200MG
     Route: 048
  2. TEGRETOL [Suspect]
     Dosage: 100MG
     Route: 048
     Dates: start: 20060504, end: 20060519
  3. ACETAZOLAMIDE [Concomitant]
     Indication: EPILEPSY
     Dosage: 250MG
     Route: 048
  4. AMOXICILLIN [Concomitant]
     Indication: URINARY TRACT INFECTION
     Dosage: 250MG
     Route: 048
     Dates: start: 20060207
  5. AMOXICILLIN + CLAVULANATE POTASSIUM [Concomitant]
     Indication: URINARY TRACT INFECTION
     Dosage: 250MG
     Route: 048
     Dates: start: 20060427
  6. MELATONIN [Concomitant]
     Indication: EPILEPSY
     Dosage: 3MG
     Route: 048
     Dates: start: 20060302
  7. PARACETAMOL [Concomitant]
     Indication: PYREXIA
     Dosage: 500MG
     Route: 054
     Dates: start: 20060417
  8. VIGABATRIN [Concomitant]
     Indication: EPILEPSY
     Dosage: 500MG
     Route: 065
     Dates: start: 20060421

REACTIONS (2)
  - CONDITION AGGRAVATED [None]
  - CONVULSION [None]
